FAERS Safety Report 11022274 (Version 1)
Quarter: 2015Q2

REPORT INFORMATION
  Report Type: Report from Study
  Country: US (occurrence: US)
  Receive Date: 20150413
  Receipt Date: 20150413
  Transmission Date: 20150821
  Serious: Yes (Other)
  Sender: FDA-Public Use
  Company Number: US-MYLANLABS-2015M1012092

PATIENT

DRUGS (2)
  1. CYTARABINE. [Suspect]
     Active Substance: CYTARABINE
     Indication: XANTHOGRANULOMA
     Dosage: 1 G/M2/DAY FOR 5 DAYS/CYCLE
     Route: 065
  2. CLOFARABINE [Suspect]
     Active Substance: CLOFARABINE
     Indication: XANTHOGRANULOMA
     Dosage: 50 MG/M2/DAY FOR 5 DAYS/CYCLE
     Route: 065

REACTIONS (6)
  - Anal fistula [Unknown]
  - Neutropenia [Unknown]
  - Serratia bacteraemia [Recovered/Resolved]
  - Cellulitis [Unknown]
  - Serratia infection [Recovered/Resolved]
  - Myositis [Unknown]
